FAERS Safety Report 5918956-4 (Version None)
Quarter: 2008Q4

REPORT INFORMATION
  Report Type: 
  Country: None (occurrence: None)
  Receive Date: 20081010
  Receipt Date: 20080926
  Transmission Date: 20090506
  Serious: Yes (Other)
  Sender: FDA-Public Use
  Company Number: 2008EU001898

PATIENT
  Age: 54 Year
  Sex: Male

DRUGS (3)
  1. PROTOPIC [Suspect]
     Indication: RASH PAPULAR
     Dosage: 0.1 %, BID, TOPICAL
     Route: 061
     Dates: start: 20071026
  2. INTERFERON [Concomitant]
  3. REBETOL [Concomitant]

REACTIONS (1)
  - KAPOSI'S SARCOMA [None]
